FAERS Safety Report 8186593-X (Version None)
Quarter: 2012Q1

REPORT INFORMATION
  Report Type: 
  Country: None (occurrence: None)
  Receive Date: 20120305
  Receipt Date: 20120305
  Transmission Date: 20120608
  Serious: Yes (Hospitalization)
  Sender: FDA-Public Use
  Company Number: None

PATIENT
  Age: 79 Year
  Sex: Male
  Weight: 83.6 kg

DRUGS (2)
  1. SULFASALAZINE [Suspect]
     Indication: RHEUMATOID ARTHRITIS
     Dosage: 500MG MG EVERY DAY PO
     Route: 048
     Dates: start: 20101018, end: 20101128
  2. SULFASALAZINE [Suspect]
     Indication: PAIN
     Dosage: 500MG MG EVERY DAY PO
     Route: 048
     Dates: start: 20101018, end: 20101128

REACTIONS (4)
  - HEADACHE [None]
  - NAUSEA [None]
  - VISION BLURRED [None]
  - NECK PAIN [None]
